FAERS Safety Report 7779868-7 (Version None)
Quarter: 2011Q3

REPORT INFORMATION
  Report Type: 
  Country: None (occurrence: None)
  Receive Date: 20110927
  Receipt Date: 20110922
  Transmission Date: 20111222
  Serious: Yes (Disabling)
  Sender: FDA-Public Use
  Company Number: US-B.I. PHARMACEUTICALS,INC./RIDGEFIELD-2011-BP-20620BP

PATIENT
  Sex: Male

DRUGS (9)
  1. ASMANEX TWISTHALER [Concomitant]
     Indication: CHRONIC OBSTRUCTIVE PULMONARY DISEASE
     Route: 055
  2. SPIRIVA [Suspect]
     Indication: ASTHMA
  3. ASPIRIN [Concomitant]
  4. NIASPAN [Concomitant]
     Indication: BLOOD CHOLESTEROL INCREASED
  5. COMBIVENT [Concomitant]
     Indication: CHRONIC OBSTRUCTIVE PULMONARY DISEASE
     Route: 055
  6. SPIRIVA [Suspect]
     Indication: CHRONIC OBSTRUCTIVE PULMONARY DISEASE
     Dosage: 18 MCG
     Route: 055
     Dates: start: 20110708, end: 20110716
  7. SIMVASTATIN [Concomitant]
     Indication: BLOOD CHOLESTEROL INCREASED
  8. FORADIL [Concomitant]
     Indication: CHRONIC OBSTRUCTIVE PULMONARY DISEASE
     Route: 055
  9. METOPROLOL TARTRATE [Concomitant]
     Indication: ATRIAL FIBRILLATION

REACTIONS (4)
  - VISUAL IMPAIRMENT [None]
  - MACULAR DEGENERATION [None]
  - VISION BLURRED [None]
  - BLINDNESS [None]
